FAERS Safety Report 7265987-0 (Version None)
Quarter: 2011Q1

REPORT INFORMATION
  Report Type: 
  Country: None (occurrence: None)
  Receive Date: 20110131
  Receipt Date: 20110128
  Transmission Date: 20110831
  Serious: Yes (Life-Threatening, Hospitalization)
  Sender: FDA-Public Use
  Company Number: GXKR2011DE00753

PATIENT
  Age: 61 Year
  Sex: Female

DRUGS (1)
  1. SULFAMETHOXAZOLE [Suspect]
     Indication: CYSTITIS
     Dosage: UNK
     Route: 048
     Dates: start: 20101017, end: 20101017

REACTIONS (4)
  - RASH [None]
  - SYNCOPE [None]
  - HYPERSENSITIVITY [None]
  - DYSPNOEA [None]
